FAERS Safety Report 9057258 (Version 1)
Quarter: 2013Q1

REPORT INFORMATION
  Report Type: Report from Study
  Country: JP (occurrence: JP)
  Receive Date: 20130131
  Receipt Date: 20130131
  Transmission Date: 20140127
  Serious: Yes (Other)
  Sender: FDA-Public Use
  Company Number: JP-GLAXOSMITHKLINE-B0859917A

PATIENT
  Age: 45 None
  Sex: Female
  Weight: 51 kg

DRUGS (3)
  1. TYKERB [Suspect]
     Indication: BREAST CANCER
     Route: 048
     Dates: start: 20090710, end: 20090911
  2. XELODA [Concomitant]
     Route: 048
     Dates: start: 20090710, end: 20090911
  3. PYDOXAL [Concomitant]
     Indication: PALMAR-PLANTAR ERYTHRODYSAESTHESIA SYNDROME
     Route: 048
     Dates: start: 20090710

REACTIONS (2)
  - Cancer pain [Not Recovered/Not Resolved]
  - Rash [Recovered/Resolved]
